FAERS Safety Report 10253257 (Version 1)
Quarter: 2014Q2

REPORT INFORMATION
  Report Type: Spontaneous
  Country: US (occurrence: US)
  Receive Date: 20140623
  Receipt Date: 20140623
  Transmission Date: 20141212
  Serious: Yes (Other)
  Sender: FDA-Public Use
  Company Number: US-BAYER-2014-087649

PATIENT
  Age: 56 Year
  Sex: Male

DRUGS (1)
  1. SORAFENIB (RAF KINASE INHIBITOR) [Suspect]
     Indication: LUNG ADENOCARCINOMA METASTATIC

REACTIONS (2)
  - Myocarditis [None]
  - Delayed effects of radiation [None]
